FAERS Safety Report 4755937-0 (Version None)
Quarter: 2005Q3

REPORT INFORMATION
  Report Type: 
  Country: None (occurrence: None)
  Receive Date: 20050830
  Receipt Date: 20050823
  Transmission Date: 20060218
  Serious: Yes (Other)
  Sender: FDA-Public Use
  Company Number: 2005UW12494

PATIENT
  Age: 73 Year
  Sex: Female
  Weight: 33.4 kg

DRUGS (7)
  1. ARIMIDEX [Suspect]
     Indication: BREAST CANCER
     Route: 048
     Dates: start: 19980129, end: 20030120
  2. NOLVADEX [Suspect]
     Indication: BREAST CANCER
     Route: 048
     Dates: start: 19980129, end: 20030110
  3. CELEBREX [Concomitant]
     Indication: ARTHRITIS
     Route: 048
     Dates: start: 20000501
  4. TYLENOL [Concomitant]
     Indication: HEADACHE
     Route: 048
  5. L-THYROXINE [Concomitant]
     Indication: HYPOTHYROIDISM
     Route: 048
  6. ASPIRIN [Concomitant]
     Indication: ARTHRITIS
     Route: 048
     Dates: start: 20000101
  7. DOCUSATE [Concomitant]
     Indication: CONSTIPATION
     Route: 048
     Dates: start: 20050401

REACTIONS (1)
  - CATARACT [None]
